FAERS Safety Report 6850865-9 (Version None)
Quarter: 2010Q3

REPORT INFORMATION
  Report Type: 
  Country: None (occurrence: None)
  Receive Date: 20100716
  Receipt Date: 20071214
  Transmission Date: 20110219
  Serious: No
  Sender: FDA-Public Use
  Company Number: US-PFIZER INC-2007089001

PATIENT
  Sex: Female
  Weight: 55.34 kg

DRUGS (6)
  1. CHANTIX [Suspect]
     Indication: SMOKING CESSATION THERAPY
     Route: 048
     Dates: start: 20071008
  2. DILANTIN [Concomitant]
     Indication: CONVULSION
  3. LAMICTAL [Concomitant]
     Indication: CONVULSION
  4. KLONOPIN [Concomitant]
     Indication: CONVULSION
  5. ZOLPIDEM TARTRATE [Concomitant]
  6. IBANDRONATE SODIUM [Concomitant]

REACTIONS (2)
  - INAPPROPRIATE SCHEDULE OF DRUG ADMINISTRATION [None]
  - TOBACCO USER [None]
